FAERS Safety Report 8672014 (Version 2)
Quarter: 2013Q4

REPORT INFORMATION
  Report Type: Spontaneous
  Country: US (occurrence: US)
  Receive Date: 20120719
  Receipt Date: 20131101
  Transmission Date: 20140711
  Serious: No
  Sender: FDA-Public Use
  Company Number: US-009507513-1207USA001399

PATIENT
  Sex: Male

DRUGS (6)
  1. PRINIVIL [Suspect]
     Indication: HYPERTENSION
     Dosage: 20 MG, BID
     Route: 048
     Dates: start: 2012
  2. PRINIVIL [Suspect]
     Dosage: 20 MG, QD
     Route: 048
     Dates: start: 201202, end: 2012
  3. EFFIENT [Concomitant]
  4. ASPIRIN [Concomitant]
  5. METOPROLOL [Concomitant]
  6. LIPITOR [Concomitant]

REACTIONS (3)
  - Anosmia [Not Recovered/Not Resolved]
  - Hypogeusia [Not Recovered/Not Resolved]
  - Hypertension [Not Recovered/Not Resolved]
